FAERS Safety Report 23646088 (Version 1)
Quarter: 2024Q1

REPORT INFORMATION
  Report Type: Spontaneous
  Country: US (occurrence: US)
  Receive Date: 20240319
  Receipt Date: 20240319
  Transmission Date: 20240409
  Serious: No
  Sender: FDA-Public Use
  Company Number: US-ESPERIONTHERAPEUTICS-2023USA00322

PATIENT
  Sex: Female
  Weight: 61.224 kg

DRUGS (3)
  1. NEXLIZET [Suspect]
     Active Substance: BEMPEDOIC ACID\EZETIMIBE
     Indication: Blood cholesterol abnormal
     Dosage: 180 MG/10 MG, QD
     Route: 048
     Dates: start: 2022
  2. NEXLIZET [Suspect]
     Active Substance: BEMPEDOIC ACID\EZETIMIBE
     Dosage: 180 MG/10 MG TABLET CUT IN HALF, QD AT NIGHT
     Route: 048
     Dates: start: 202303
  3. AMLODIPINE [Concomitant]
     Active Substance: AMLODIPINE BESYLATE
     Dosage: 2.5 MILLIGRAM, QD IN THE MORNING
     Route: 048

REACTIONS (4)
  - Hunger [Recovered/Resolved]
  - Therapy interrupted [Recovered/Resolved]
  - Blood cholesterol increased [Unknown]
  - Wrong technique in product usage process [Not Recovered/Not Resolved]

NARRATIVE: CASE EVENT DATE: 20220101
